FAERS Safety Report 7662575-9 (Version None)
Quarter: 2011Q3

REPORT INFORMATION
  Report Type: 
  Country: None (occurrence: None)
  Receive Date: 20110805
  Receipt Date: 20101012
  Transmission Date: 20111222
  Serious: No
  Sender: FDA-Public Use
  Company Number: US-ABBOTT-10P-163-0678625-00

PATIENT
  Sex: Male
  Weight: 81.72 kg

DRUGS (2)
  1. ASPIRIN [Concomitant]
     Indication: PROPHYLAXIS
     Dosage: 30 MINS BEFORE NIASPAN
     Route: 048
  2. NIASPAN [Suspect]
     Indication: BLOOD CHOLESTEROL INCREASED
     Route: 048
     Dates: start: 20100823

REACTIONS (4)
  - PAIN OF SKIN [None]
  - FLUSHING [None]
  - PARAESTHESIA [None]
  - BURNING SENSATION [None]
